FAERS Safety Report 15911291 (Version 1)
Quarter: 2019Q1

REPORT INFORMATION
  Report Type: Spontaneous
  Country: JP (occurrence: JP)
  Receive Date: 20190204
  Receipt Date: 20190204
  Transmission Date: 20190417
  Serious: Yes (Hospitalization)
  Sender: FDA-Public Use
  Company Number: JP-BAUSCH-BL-2019-003284

PATIENT
  Sex: Male

DRUGS (3)
  1. D-PENICILLAMINE [Suspect]
     Active Substance: PENICILLAMINE
     Indication: HEPATO-LENTICULAR DEGENERATION
     Route: 065
  2. D-PENICILLAMINE [Suspect]
     Active Substance: PENICILLAMINE
     Dosage: 0.8-1.0 G/DAY WITH A PERIODIC DAY OFF EVERY THREE DAYS
     Route: 065
  3. D-PENICILLAMINE [Suspect]
     Active Substance: PENICILLAMINE
     Route: 065

REACTIONS (2)
  - Skin degenerative disorder [Not Recovered/Not Resolved]
  - Elastosis perforans [Not Recovered/Not Resolved]
